FAERS Safety Report 11194104 (Version 2)
Quarter: 2015Q2

REPORT INFORMATION
  Report Type: Spontaneous
  Country: DK (occurrence: DK)
  Receive Date: 20150616
  Receipt Date: 20150617
  Transmission Date: 20150821
  Serious: Yes (Hospitalization, Other)
  Sender: FDA-Public Use
  Company Number: AU-MYLANLABS-2015M1019578

PATIENT

DRUGS (10)
  1. PREGABALIN. [Interacting]
     Active Substance: PREGABALIN
     Indication: ANXIETY
     Dosage: 75MG, AND THEN TITRATED TO 600 MG/DAY
     Route: 065
  2. PREGABALIN. [Interacting]
     Active Substance: PREGABALIN
     Dosage: 525 MG/D, AND THEN TAPERED
     Route: 065
  3. CITALOPRAM [Concomitant]
     Active Substance: CITALOPRAM HYDROBROMIDE
     Indication: ANXIETY
     Dosage: 0+0+0+20MG
     Route: 065
  4. PROPRANOLOL [Concomitant]
     Active Substance: PROPRANOLOL\PROPRANOLOL HYDROCHLORIDE
     Indication: ANXIETY
     Dosage: 30+0+0+10MG
     Route: 065
  5. ATROPINE [Concomitant]
     Active Substance: ATROPINE
     Indication: SALIVARY HYPERSECRETION
     Dosage: 0.25+0+0.25+0.25MG
     Route: 065
  6. PREGABALIN. [Interacting]
     Active Substance: PREGABALIN
     Indication: OFF LABEL USE
     Dosage: 600 MG/DAY, AND THEN REDUCED TO 525 MG/D
     Route: 065
  7. CLONAZEPAM. [Concomitant]
     Active Substance: CLONAZEPAM
     Dosage: 0.5MG/DAY
     Route: 065
  8. CLOZAPINE. [Suspect]
     Active Substance: CLOZAPINE
     Indication: SCHIZOPHRENIA, PARANOID TYPE
     Dosage: 500MG DAILY (100+0+0+400MG)
     Route: 065
  9. CLONAZEPAM. [Concomitant]
     Active Substance: CLONAZEPAM
     Indication: ANXIETY
     Dosage: 0+0+0.5+0.5MG/DAY, THEN REDUCED TO 0.5MG/DAY
     Route: 065
  10. AMISULPRIDE [Concomitant]
     Active Substance: AMISULPRIDE
     Dosage: 0+0+0+200MG
     Route: 065

REACTIONS (6)
  - Overdose [Unknown]
  - Generalised tonic-clonic seizure [Recovered/Resolved]
  - Loss of consciousness [Unknown]
  - Lower limb fracture [Unknown]
  - Salivary hypersecretion [Unknown]
  - Drug interaction [Unknown]
